FAERS Safety Report 11854462 (Version 3)
Quarter: 2016Q1

REPORT INFORMATION
  Report Type: Spontaneous
  Country: CN (occurrence: CN)
  Receive Date: 20151221
  Receipt Date: 20160104
  Transmission Date: 20160526
  Serious: Yes (Death)
  Sender: FDA-Public Use
  Company Number: CN-009507513-1512CHN010115

PATIENT
  Age: 65 Year
  Sex: Male

DRUGS (3)
  1. MINOCYCLINE [Concomitant]
     Active Substance: MINOCYCLINE\MINOCYCLINE HYDROCHLORIDE
  2. GANCICLOVIR. [Concomitant]
     Active Substance: GANCICLOVIR
  3. TIENAM [Suspect]
     Active Substance: CILASTATIN SODIUM\IMIPENEM
     Indication: LUNG INFECTION
     Dosage: 0.5 G, Q8H
     Route: 041
     Dates: start: 20151209, end: 20151214

REACTIONS (2)
  - Depressed mood [Unknown]
  - Disease progression [Fatal]

NARRATIVE: CASE EVENT DATE: 201512
